FAERS Safety Report 6887689-2 (Version None)
Quarter: 2010Q3

REPORT INFORMATION
  Report Type: 
  Country: None (occurrence: None)
  Receive Date: 20100730
  Receipt Date: 20100723
  Transmission Date: 20110219
  Serious: Yes (Death)
  Sender: FDA-Public Use
  Company Number: US-ROCHE-709821

PATIENT
  Sex: Female

DRUGS (1)
  1. MYCOPHENOLATE MOFETIL [Suspect]
     Dosage: START DATE: 1997-1998
     Route: 065
     Dates: start: 19970101, end: 20090401

REACTIONS (1)
  - DEATH [None]
